FAERS Safety Report 14723470 (Version 2)
Quarter: 2018Q2

REPORT INFORMATION
  Report Type: Spontaneous
  Country: DE (occurrence: DE)
  Receive Date: 20180405
  Receipt Date: 20180424
  Transmission Date: 20180711
  Serious: Yes (Hospitalization)
  Sender: FDA-Public Use
  Company Number: DE-TEVA-814415GER

PATIENT
  Age: 5 Year
  Sex: Male
  Weight: 34 kg

DRUGS (13)
  1. TOPIRAMAT [Suspect]
     Active Substance: TOPIRAMATE
     Indication: EPILEPSY
     Dosage: 120 MILLIGRAM DAILY;
     Route: 048
  2. SALBUTAMOL [Suspect]
     Active Substance: ALBUTEROL
     Indication: EPILEPSY
     Dosage: 4 DF DOSAGE FORM EVERY 2 DAYS
     Route: 065
  3. VALPROATE [Suspect]
     Active Substance: VALPROIC ACID
     Indication: EPILEPSY
     Dosage: 825 MILLIGRAM DAILY;
     Route: 048
  4. CIRCADIN [Concomitant]
     Active Substance: MELATONIN
     Indication: PRODUCT USED FOR UNKNOWN INDICATION
     Dosage: 6 MILLIGRAM DAILY;
  5. CLOBAZEM [Suspect]
     Active Substance: CLOBAZAM
     Dosage: 7 MILLIGRAM DAILY;
     Route: 048
  6. SULTIAM [Concomitant]
     Active Substance: SULTHIAME
     Indication: EPILEPSY
     Dosage: 200 MILLIGRAM DAILY;
     Route: 048
  7. TOPIRAMAT [Suspect]
     Active Substance: TOPIRAMATE
     Dosage: 240 MILLIGRAM DAILY;
     Route: 048
  8. CLOBAZEM [Suspect]
     Active Substance: CLOBAZAM
     Dosage: UNSPECIFIED, 3-0-8
  9. VALPROINSAEURE [Concomitant]
     Active Substance: VALPROIC ACID
     Indication: EPILEPSY
     Dosage: 475MG IN THE MORNING, 600MG IN THE EVENING
     Route: 048
  10. L-THYROXIN [Concomitant]
     Active Substance: LEVOTHYROXINE SODIUM
     Indication: PRODUCT USED FOR UNKNOWN INDICATION
     Dosage: 50 MICROGRAM DAILY;
  11. VALPROATE [Suspect]
     Active Substance: VALPROIC ACID
     Dosage: 1075 MILLIGRAM DAILY;
     Route: 048
  12. CLOBAZEM [Suspect]
     Active Substance: CLOBAZAM
     Dosage: 9 MILLIGRAM DAILY;
     Route: 048
  13. HYDROCORTISON [Concomitant]
     Active Substance: HYDROCORTISONE
     Indication: PRODUCT USED FOR UNKNOWN INDICATION
     Dosage: DAILY DOSE OF 10MG DIVIDED INTO: 5-2.5-2.5

REACTIONS (4)
  - Disturbance in attention [Recovered/Resolved]
  - Bronchitis [Recovering/Resolving]
  - Drug intolerance [Unknown]
  - Epilepsy [Recovered/Resolved]

NARRATIVE: CASE EVENT DATE: 20160703
